FAERS Safety Report 24259583 (Version 1)
Quarter: 2024Q3

REPORT INFORMATION
  Report Type: Spontaneous
  Country: US (occurrence: US)
  Receive Date: 20240828
  Receipt Date: 20240828
  Transmission Date: 20241017
  Serious: Yes (Death, Life-Threatening, Hospitalization, Other)
  Sender: GLENMARK
  Company Number: US-MLMSERVICE-20240812-PI155406-00306-1

PATIENT

DRUGS (1)
  1. TACROLIMUS [Suspect]
     Active Substance: TACROLIMUS
     Indication: Immunosuppressant drug therapy
     Dosage: UNK
     Route: 065

REACTIONS (10)
  - Neuroendocrine carcinoma of the cervix [Fatal]
  - Cervix carcinoma stage IV [Fatal]
  - Metastases to peritoneum [Fatal]
  - Metastases to bladder [Fatal]
  - Metastases to bone [Fatal]
  - Adenocarcinoma of the cervix [Fatal]
  - Metastases to pleura [Fatal]
  - Metastases to lung [Fatal]
  - Metastases to liver [Fatal]
  - Papilloma viral infection [Fatal]
